FAERS Safety Report 7499543-6 (Version None)
Quarter: 2011Q2

REPORT INFORMATION
  Report Type: 
  Country: None (occurrence: None)
  Receive Date: 20110524
  Receipt Date: 20110520
  Transmission Date: 20111010
  Serious: Yes (Hospitalization)
  Sender: FDA-Public Use
  Company Number: PHHY2010BR76845

PATIENT
  Sex: Male

DRUGS (2)
  1. ANTIBIOTICS [Concomitant]
     Dosage: UNK
  2. FORMOTEROL FUMARATE [Suspect]
     Indication: RESPIRATORY FAILURE
     Dosage: 1 DF, BID

REACTIONS (1)
  - CONSTIPATION [None]
